FAERS Safety Report 14915480 (Version 2)
Quarter: 2018Q2

REPORT INFORMATION
  Report Type: Spontaneous
  Country: IT (occurrence: IT)
  Receive Date: 20180518
  Receipt Date: 20180524
  Transmission Date: 20180711
  Serious: Yes (Death, Other)
  Sender: FDA-Public Use
  Company Number: IT-MYLANLABS-2018M1032280

PATIENT
  Sex: Female

DRUGS (1)
  1. METHADONE [Suspect]
     Active Substance: METHADONE HYDROCHLORIDE
     Indication: PRODUCT USED FOR UNKNOWN INDICATION
     Dosage: 80 MG, QD
     Route: 064

REACTIONS (13)
  - Gliosis [Unknown]
  - Cyanosis [Unknown]
  - Foetal exposure during pregnancy [Unknown]
  - Haemorrhage [Unknown]
  - Brain injury [Unknown]
  - Foetal death [Fatal]
  - Epidermolysis [Unknown]
  - Brain oedema [Unknown]
  - Hypoxic-ischaemic encephalopathy [Unknown]
  - Abnormal organ growth [Unknown]
  - Foetal placental thrombosis [Unknown]
  - Petechiae [Unknown]
  - Skin maceration [Unknown]
